FAERS Safety Report 8935888 (Version 2)
Quarter: 2013Q1

REPORT INFORMATION
  Report Type: Spontaneous
  Country: US (occurrence: US)
  Receive Date: 20121130
  Receipt Date: 20130228
  Transmission Date: 20140127
  Serious: No
  Sender: FDA-Public Use
  Company Number: US-ABBOTT-12P-163-0993052-00

PATIENT
  Age: 65 Year
  Sex: Male
  Weight: 145.28 kg

DRUGS (6)
  1. ANDROGEL [Suspect]
     Indication: BLOOD TESTOSTERONE DECREASED
     Dosage: 40.5  MILLIGRAM
     Route: 061
     Dates: start: 201204
  2. REQUIP [Concomitant]
     Indication: RESTLESS LEGS SYNDROME
  3. WATER PILL [Concomitant]
     Indication: PRODUCT USED FOR UNKNOWN INDICATION
  4. CHOLESTEROL [Concomitant]
     Indication: PRODUCT USED FOR UNKNOWN INDICATION
  5. SUGAR [Concomitant]
     Indication: PROPHYLAXIS
  6. SUGAR [Concomitant]
     Indication: DIABETES MELLITUS

REACTIONS (1)
  - Poor quality sleep [Not Recovered/Not Resolved]
